FAERS Safety Report 7183266-7 (Version None)
Quarter: 2010Q4

REPORT INFORMATION
  Report Type: 
  Country: None (occurrence: None)
  Receive Date: 20101222
  Receipt Date: 20100618
  Transmission Date: 20110411
  Serious: No
  Sender: FDA-Public Use
  Company Number: A0861040A

PATIENT
  Age: 68 Year
  Sex: Female

DRUGS (2)
  1. FLONASE [Suspect]
     Route: 045
     Dates: start: 20100325, end: 20100301
  2. VALIUM [Concomitant]

REACTIONS (1)
  - CANDIDIASIS [None]
